FAERS Safety Report 13015354 (Version 1)
Quarter: 2016Q4

REPORT INFORMATION
  Report Type: Spontaneous
  Country: US (occurrence: US)
  Receive Date: 20161211
  Receipt Date: 20161211
  Transmission Date: 20170207
  Serious: No
  Sender: FDA-Public Use
  Company Number: US-TAIHO ONCOLOGY INC-EU-2016-03120

PATIENT
  Age: 65 Year
  Sex: Male

DRUGS (10)
  1. ZOLOFT [Concomitant]
     Active Substance: SERTRALINE HYDROCHLORIDE
     Dosage: NI
  2. CARAFATE [Concomitant]
     Active Substance: SUCRALFATE
     Dosage: NI
  3. LORATADINE. [Concomitant]
     Active Substance: LORATADINE
     Dosage: NI
  4. TELMISARTAN. [Concomitant]
     Active Substance: TELMISARTAN
     Dosage: NI
  5. NEXIUM [Concomitant]
     Active Substance: ESOMEPRAZOLE MAGNESIUM
     Dosage: NI
  6. COMPAZINE [Concomitant]
     Active Substance: PROCHLORPERAZINE MALEATE
     Dosage: NI
  7. CIPROFLOXACIN. [Concomitant]
     Active Substance: CIPROFLOXACIN
     Dosage: NI
  8. HYDROCODONE [Concomitant]
     Active Substance: HYDROCODONE
     Dosage: NI
  9. VESICARE [Concomitant]
     Active Substance: SOLIFENACIN SUCCINATE
     Dosage: NI
  10. LONSURF [Suspect]
     Active Substance: TIPIRACIL HYDROCHLORIDE\TRIFLURIDINE
     Indication: COLON CANCER
     Route: 048
     Dates: start: 20160222

REACTIONS (3)
  - Nausea [Not Recovered/Not Resolved]
  - Fatigue [Not Recovered/Not Resolved]
  - Diarrhoea [Not Recovered/Not Resolved]

NARRATIVE: CASE EVENT DATE: 201611
